FAERS Safety Report 18036178 (Version 1)
Quarter: 2020Q3

REPORT INFORMATION
  Report Type: Spontaneous
  Country: JP (occurrence: JP)
  Receive Date: 20200717
  Receipt Date: 20200717
  Transmission Date: 20201103
  Serious: Yes (Hospitalization)
  Sender: FDA-Public Use
  Company Number: JP-BAUSCH-BL-2019-066260

PATIENT
  Age: 54 Year
  Sex: Male
  Weight: 94.4 kg

DRUGS (2)
  1. LUMICEF [Suspect]
     Active Substance: BRODALUMAB
     Dosage: SYRINGE
     Route: 058
     Dates: start: 20190125, end: 20190401
  2. LUMICEF [Suspect]
     Active Substance: BRODALUMAB
     Indication: PSORIASIS
     Dosage: SYRINGE
     Route: 058
     Dates: start: 20190112, end: 20190118

REACTIONS (1)
  - Hepatic function abnormal [Recovered/Resolved]

NARRATIVE: CASE EVENT DATE: 20190401
